FAERS Safety Report 23328751 (Version 1)
Quarter: 2023Q4

REPORT INFORMATION
  Report Type: Report from Study
  Country: US (occurrence: US)
  Receive Date: 20231221
  Receipt Date: 20231221
  Transmission Date: 20240110
  Serious: Yes (Other)
  Sender: FDA-Public Use
  Company Number: US-ABBVIE-5432213

PATIENT
  Sex: Female
  Weight: 83.914 kg

DRUGS (14)
  1. SKYRIZI [Suspect]
     Active Substance: RISANKIZUMAB-RZAA
     Indication: Psoriasis
     Dosage: FORM STRENGTH: 75 MG
     Route: 058
     Dates: start: 202101
  2. TOPIRAMATE [Concomitant]
     Active Substance: TOPIRAMATE
     Indication: Product used for unknown indication
  3. SIMVASTATIN [Concomitant]
     Active Substance: SIMVASTATIN
     Indication: Product used for unknown indication
  4. IBUPROFEN [Concomitant]
     Active Substance: IBUPROFEN
     Indication: Product used for unknown indication
  5. METOPROLOL TARTRATE [Concomitant]
     Active Substance: METOPROLOL TARTRATE
     Indication: Product used for unknown indication
  6. LISINOPRIL [Concomitant]
     Active Substance: LISINOPRIL
     Indication: Product used for unknown indication
  7. Ipratropium bromide/ albuterol sulfate [Concomitant]
     Indication: Chronic obstructive pulmonary disease
     Dosage: 0.5-2.5 MG/ 3ML?FREQUENCY TEXT: 2 PUFFS EVERY 4-6 HRS
  8. VENTOLIN HFA [Concomitant]
     Active Substance: ALBUTEROL SULFATE
     Indication: Product used for unknown indication
     Dosage: FREQUENCY TEXT: 2 PUFFS EVERY 4-6 HRS
  9. TRAZODONE HCL [Concomitant]
     Active Substance: TRAZODONE HYDROCHLORIDE
     Indication: Product used for unknown indication
  10. TRAMADOL HCL [Concomitant]
     Active Substance: TRAMADOL HYDROCHLORIDE
     Indication: Pain
  11. DEPAKOTE [Concomitant]
     Active Substance: DIVALPROEX SODIUM
     Indication: Product used for unknown indication
  12. DOXEPIN HCL [Concomitant]
     Active Substance: DOXEPIN HYDROCHLORIDE
     Indication: Product used for unknown indication
     Dosage: FREQUENCY TEXT: 1 CAPSULE BY MOUTH IN THE MORNING
  13. DOXEPIN HCL [Concomitant]
     Active Substance: DOXEPIN HYDROCHLORIDE
     Indication: Product used for unknown indication
     Dosage: FREQUENCY TEXT: 2 CAP BY MOUTH AT BEDTIME
  14. CITALOPRAM HYDROBROMIDE [Concomitant]
     Active Substance: CITALOPRAM HYDROBROMIDE
     Indication: Product used for unknown indication

REACTIONS (34)
  - Transient ischaemic attack [Recovered/Resolved with Sequelae]
  - Gait disturbance [Not Recovered/Not Resolved]
  - Psoriasis [Unknown]
  - Fall [Recovering/Resolving]
  - Cognitive disorder [Not Recovered/Not Resolved]
  - Osteoarthritis [Unknown]
  - Transient ischaemic attack [Recovering/Resolving]
  - Dizziness [Not Recovered/Not Resolved]
  - Balance disorder [Not Recovered/Not Resolved]
  - Hypoxia [Unknown]
  - Fall [Recovered/Resolved]
  - Amnesia [Not Recovered/Not Resolved]
  - Dementia [Not Recovered/Not Resolved]
  - Sleep disorder due to general medical condition, insomnia type [Unknown]
  - Migraine with aura [Unknown]
  - Chronic obstructive pulmonary disease [Unknown]
  - Nervous system disorder [Unknown]
  - Essential hypertension [Unknown]
  - Type V hyperlipidaemia [Unknown]
  - Transient ischaemic attack [Unknown]
  - Major depression [Unknown]
  - Anxiety [Unknown]
  - Back pain [Unknown]
  - Chronic respiratory failure [Unknown]
  - Neoplasm skin [Unknown]
  - Chronic obstructive pulmonary disease [Unknown]
  - Ataxia [Unknown]
  - Dysphonia [Unknown]
  - Speech disorder [Unknown]
  - Oesophageal stenosis [Unknown]
  - Arthralgia [Unknown]
  - Depression [Unknown]
  - Cerebrovascular disorder [Unknown]
  - Gait inability [Unknown]

NARRATIVE: CASE EVENT DATE: 20210101
